FAERS Safety Report 20069796 (Version 1)
Quarter: 2021Q4

REPORT INFORMATION
  Report Type: Spontaneous
  Country: US (occurrence: None)
  Receive Date: 20211113
  Receipt Date: 20211113
  Transmission Date: 20220304
  Serious: Yes (Other)
  Sender: FDA-Public Use
  Company Number: None

PATIENT
  Age: 74 Year
  Sex: Female
  Weight: 67.5 kg

DRUGS (5)
  1. OLMESARTAN MEDOXOMIL [Suspect]
     Active Substance: OLMESARTAN MEDOXOMIL
     Indication: Blood pressure increased
     Dosage: OTHER QUANTITY : 30 TABLET(S);?
     Route: 048
  2. HYDROCHLOROTHIAZIDE [Concomitant]
     Active Substance: HYDROCHLOROTHIAZIDE
  3. BYSTOLIC [Concomitant]
  4. SYNTHROID [Concomitant]
  5. simvastatn [Concomitant]

REACTIONS (5)
  - Dizziness [None]
  - Dizziness [None]
  - Energy increased [None]
  - Fatigue [None]
  - Blood pressure systolic increased [None]

NARRATIVE: CASE EVENT DATE: 20211023
